FAERS Safety Report 21175043 (Version 1)
Quarter: 2022Q3

REPORT INFORMATION
  Report Type: Spontaneous
  Country: IS (occurrence: IS)
  Receive Date: 20220805
  Receipt Date: 20220805
  Transmission Date: 20221027
  Serious: Yes (Other)
  Sender: FDA-Public Use
  Company Number: IS-ROCHE-3141562

PATIENT
  Age: 24 Year
  Sex: Male
  Weight: 100 kg

DRUGS (29)
  1. MELPHALAN [Suspect]
     Active Substance: MELPHALAN
     Indication: Burkitt^s lymphoma
     Dosage: UNK (GEMCITABINE-BASED REGIMEND1)
     Route: 065
     Dates: start: 20210901
  2. VINCRISTINE SULFATE [Suspect]
     Active Substance: VINCRISTINE SULFATE
     Indication: Burkitt^s lymphoma
     Dosage: UNK (1ST SYSTEMIC TREATMENT R-CODOX-M/IVAC)
     Route: 065
     Dates: start: 20210601
  3. VINCRISTINE SULFATE [Suspect]
     Active Substance: VINCRISTINE SULFATE
     Dosage: UNK (4TH SYSTEMIC TREATMENT)
     Route: 065
     Dates: start: 20211022
  4. CARBOPLATIN [Suspect]
     Active Substance: CARBOPLATIN
     Indication: Burkitt^s lymphoma
     Dosage: UNK (2ND SYSTEMIC TREATMENT OBINUTUZUMAB-ICE)
     Route: 065
     Dates: start: 20210701
  5. CYCLOPHOSPHAMIDE [Suspect]
     Active Substance: CYCLOPHOSPHAMIDE
     Indication: Burkitt^s lymphoma
     Dosage: UNK (1ST SYSTEMIC TREATMENT R-CODOX-M/IVAC)
     Route: 065
     Dates: start: 20210601
  6. CYCLOPHOSPHAMIDE [Suspect]
     Active Substance: CYCLOPHOSPHAMIDE
     Dosage: UNK (4TH SYSTEMIC TREATMENT)
     Route: 065
     Dates: start: 20211022
  7. CYTARABINE [Suspect]
     Active Substance: CYTARABINE
     Indication: Burkitt^s lymphoma
     Dosage: 1ST SYSTEMIC TREATMENT R-CODOX-M/IVAC
     Route: 065
     Dates: start: 20210601
  8. DOXORUBICIN [Suspect]
     Active Substance: DOXORUBICIN
     Indication: Burkitt^s lymphoma
     Dosage: UNK (1ST SYSTEMIC TREATMENT R-CODOX-M/IVAC)
     Route: 065
     Dates: start: 20210601
  9. DOXORUBICIN [Suspect]
     Active Substance: DOXORUBICIN
     Dosage: UNK (4TH SYSTEMIC TREATMENT)
     Route: 065
     Dates: start: 20211022
  10. ETOPOSIDE [Suspect]
     Active Substance: ETOPOSIDE
     Indication: Burkitt^s lymphoma
     Dosage: UNK (1ST SYSTEMIC TREATMENT R-CODOX-M/IVAC)
     Route: 065
     Dates: start: 20210601
  11. ETOPOSIDE [Suspect]
     Active Substance: ETOPOSIDE
     Dosage: UNK (2ND SYSTEMIC TREATMENT OBINUTUZUMAB-ICE)
     Route: 065
     Dates: start: 20210701
  12. GEMCITABINE [Suspect]
     Active Substance: GEMCITABINE
     Indication: Burkitt^s lymphoma
     Dosage: UNK (GEMCITABINE-BASED REGIMENDAY 1, 8, 15)
     Route: 065
     Dates: start: 20210901
  13. IFOSFAMIDE [Suspect]
     Active Substance: IFOSFAMIDE
     Indication: Burkitt^s lymphoma
     Dosage: UNK (1ST SYSTEMIC TREATMENT R-CODOX-M/IVAC)
     Route: 065
     Dates: start: 20210601
  14. IFOSFAMIDE [Suspect]
     Active Substance: IFOSFAMIDE
     Dosage: UNK (2ND SYSTEMIC TREATMENT OBINUTUZUMAB-ICE)
     Route: 065
     Dates: start: 20210701
  15. METHOTREXATE [Suspect]
     Active Substance: METHOTREXATE
     Indication: Burkitt^s lymphoma
     Dosage: UNK (1ST SYSTEMIC TREATMENT R-CODOX-M/IVAC)
     Route: 065
     Dates: start: 20210601
  16. OBINUTUZUMAB [Suspect]
     Active Substance: OBINUTUZUMAB
     Indication: Burkitt^s lymphoma
     Dosage: UNK (2ND SYSTEMIC TREATMENT OBINUTUZUMAB-ICE)
     Route: 042
     Dates: start: 20210701
  17. PREDNISONE [Suspect]
     Active Substance: PREDNISONE
     Indication: Burkitt^s lymphoma
     Dosage: UNK (4TH SYSTEMIC TREATMENT)
     Route: 065
     Dates: start: 20211022
  18. RITUXIMAB [Suspect]
     Active Substance: RITUXIMAB
     Indication: Burkitt^s lymphoma
     Dosage: 1ST SYSTEMIC TREATMENT R-CODOX-M/IVAC
     Route: 065
     Dates: start: 20210601
  19. RITUXIMAB [Suspect]
     Active Substance: RITUXIMAB
     Dosage: UNK (4TH SYSTEMIC TREATMENT)
     Route: 065
     Dates: start: 20211022
  20. ALLOPURINOL [Concomitant]
     Active Substance: ALLOPURINOL
     Indication: Product used for unknown indication
     Dosage: 300 MILLIGRAM
     Route: 065
  21. ACYCLOVIR [Concomitant]
     Active Substance: ACYCLOVIR
     Indication: Product used for unknown indication
     Dosage: UNK
     Route: 065
  22. CITALOPRAM [Concomitant]
     Active Substance: CITALOPRAM HYDROBROMIDE
     Indication: Product used for unknown indication
     Dosage: 20 MILLIGRAM
     Route: 065
  23. MORPHINE SULFATE [Concomitant]
     Active Substance: MORPHINE SULFATE
     Indication: Product used for unknown indication
     Dosage: 20 MILLIGRAM (20 MG X2 )
     Route: 065
  24. FLUCONAZOLE [Concomitant]
     Active Substance: FLUCONAZOLE
     Indication: Product used for unknown indication
     Dosage: UNK
     Route: 065
  25. METRONIDAZOLE [Concomitant]
     Active Substance: METRONIDAZOLE
     Indication: Product used for unknown indication
     Dosage: UNK
     Route: 065
  26. MEROPENEM [Concomitant]
     Active Substance: MEROPENEM
     Indication: Product used for unknown indication
     Dosage: 1 GRAM
     Route: 065
  27. OXAZEPAM [Concomitant]
     Active Substance: OXAZEPAM
     Indication: Product used for unknown indication
     Dosage: 10 MILLIGRAM
     Route: 065
  28. ACETAMINOPHEN [Concomitant]
     Active Substance: ACETAMINOPHEN
     Indication: Product used for unknown indication
     Dosage: 1000 MILLIGRAM (1000 MG X4)
     Route: 065
  29. VANCOMYCIN [Concomitant]
     Active Substance: VANCOMYCIN
     Indication: Product used for unknown indication
     Dosage: 1.5 GRAM
     Route: 065

REACTIONS (3)
  - Disease progression [Unknown]
  - Small intestinal perforation [Unknown]
  - Blood lactate dehydrogenase increased [Unknown]
